FAERS Safety Report 7031112-4 (Version None)
Quarter: 2010Q4

REPORT INFORMATION
  Report Type: 
  Country: None (occurrence: None)
  Receive Date: 20101001
  Receipt Date: 20100917
  Transmission Date: 20110411
  Serious: No
  Sender: FDA-Public Use
  Company Number: 019000

PATIENT
  Weight: 82 kg

DRUGS (3)
  1. KEPPRA [Suspect]
     Indication: CONVULSION
     Dosage: 500 MG, WEEK ON TO WEEK 2 JULY ORAL, 500 MG BID, WEEK 2 TO WEEK 3 JULY ORAL, 750 MG BID ORAL
     Route: 048
     Dates: start: 20100701, end: 20100701
  2. KEPPRA [Suspect]
     Indication: CONVULSION
     Dosage: 500 MG, WEEK ON TO WEEK 2 JULY ORAL, 500 MG BID, WEEK 2 TO WEEK 3 JULY ORAL, 750 MG BID ORAL
     Route: 048
     Dates: start: 20100701, end: 20100701
  3. KEPPRA [Suspect]
     Indication: CONVULSION
     Dosage: 500 MG, WEEK ON TO WEEK 2 JULY ORAL, 500 MG BID, WEEK 2 TO WEEK 3 JULY ORAL, 750 MG BID ORAL
     Route: 048
     Dates: start: 20100801

REACTIONS (1)
  - PETIT MAL EPILEPSY [None]
